FAERS Safety Report 5647202-4 (Version None)
Quarter: 2008Q1

REPORT INFORMATION
  Report Type: 
  Country: None (occurrence: None)
  Receive Date: 20080303
  Receipt Date: 20080218
  Transmission Date: 20080703
  Serious: Yes (Hospitalization)
  Sender: FDA-Public Use
  Company Number: HR-ELI_LILLY_AND_COMPANY-HR200802004518

PATIENT
  Sex: Female
  Weight: 77 kg

DRUGS (6)
  1. LISPRO [Suspect]
     Dosage: 26 IU, UNK
     Route: 058
     Dates: start: 20070802
  2. LISPRO [Suspect]
     Dosage: 10 IU, DAILY (1/D)
     Route: 058
     Dates: start: 20070802
  3. INSULIN GLARGINE [Suspect]
     Dosage: 15 IU, DAILY (1/D)
     Route: 058
     Dates: start: 20070830
  4. TRANDOLAPRIL [Concomitant]
     Indication: PROPHYLAXIS
     Dates: start: 20040408
  5. ETHYLESTRENOL [Concomitant]
     Indication: DYSMENORRHOEA
     Dates: start: 20070903
  6. VITAMINS NOS [Concomitant]

REACTIONS (2)
  - DIABETES MELLITUS INADEQUATE CONTROL [None]
  - DIABETIC COMPLICATION [None]
